FAERS Safety Report 7233259-6 (Version None)
Quarter: 2011Q1

REPORT INFORMATION
  Report Type: 
  Country: None (occurrence: None)
  Receive Date: 20110119
  Receipt Date: 20110114
  Transmission Date: 20110831
  Serious: Yes (Other)
  Sender: FDA-Public Use
  Company Number: B0694150A

PATIENT
  Sex: Female
  Weight: 59 kg

DRUGS (2)
  1. KIVEXA [Suspect]
     Indication: HIV INFECTION
     Dosage: 1TAB PER DAY
     Route: 065
     Dates: start: 20101115
  2. ISENTRESS [Suspect]
     Indication: HIV INFECTION
     Dosage: 800MG PER DAY
     Route: 065
     Dates: start: 20101115

REACTIONS (3)
  - SENSATION OF HEAVINESS [None]
  - DYSPNOEA [None]
  - BLOOD PRESSURE FLUCTUATION [None]
